FAERS Safety Report 24971211 (Version 4)
Quarter: 2025Q3

REPORT INFORMATION
  Report Type: Report from Study
  Country: JP (occurrence: JP)
  Receive Date: 20250214
  Receipt Date: 20250808
  Transmission Date: 20251020
  Serious: Yes (Other)
  Sender: ALEXION PHARMACEUTICALS
  Company Number: JP-ASTRAZENECA-230027049_011820_P_1

PATIENT
  Age: 18 Year
  Sex: Male
  Weight: 79 kg

DRUGS (5)
  1. KOSELUGO [Suspect]
     Active Substance: SELUMETINIB
     Indication: Neurofibromatosis
     Dosage: 50 MILLIGRAM, BID
     Dates: start: 20230331, end: 20230413
  2. KOSELUGO [Suspect]
     Active Substance: SELUMETINIB
     Dosage: 35 MILLIGRAM, BID
     Dates: start: 20230414, end: 20230526
  3. KOSELUGO [Suspect]
     Active Substance: SELUMETINIB
     Dosage: 100 MILLIGRAM, QD
     Dates: start: 20230527, end: 20231117
  4. KOSELUGO [Suspect]
     Active Substance: SELUMETINIB
     Dosage: 70 MILLIGRAM, QD
     Dates: start: 20231208, end: 20240326
  5. KOSELUGO [Suspect]
     Active Substance: SELUMETINIB
     Dosage: 50 MILLIGRAM, BID
     Dates: start: 20240327

REACTIONS (4)
  - Serous retinal detachment [Recovering/Resolving]
  - Blood creatine phosphokinase increased [Recovered/Resolved]
  - Rash [Recovering/Resolving]
  - Product dose omission issue [Unknown]

NARRATIVE: CASE EVENT DATE: 20230414
